FAERS Safety Report 5421059-9 (Version None)
Quarter: 2007Q3

REPORT INFORMATION
  Report Type: 
  Country: None (occurrence: None)
  Receive Date: 20070821
  Receipt Date: 20070816
  Transmission Date: 20080115
  Serious: Yes (Other)
  Sender: FDA-Public Use
  Company Number: A0673099A

PATIENT
  Age: 42 Year
  Sex: Female

DRUGS (3)
  1. COMBIVIR [Suspect]
     Indication: HIV INFECTION
     Dosage: 900MG PER DAY
     Route: 048
  2. RETROVIR [Suspect]
     Indication: HIV INFECTION
     Dosage: 66MG PER DAY
     Route: 042
     Dates: start: 20070726, end: 20070726
  3. REYATAZ [Concomitant]
     Indication: HIV INFECTION
     Dosage: 400MG PER DAY
     Route: 048

REACTIONS (3)
  - DRUG EXPOSURE DURING PREGNANCY [None]
  - GESTATIONAL DIABETES [None]
  - INTRA-UTERINE DEATH [None]
